FAERS Safety Report 25448780 (Version 1)
Quarter: 2025Q2

REPORT INFORMATION
  Report Type: Spontaneous
  Country: CA (occurrence: CA)
  Receive Date: 20250618
  Receipt Date: 20250618
  Transmission Date: 20250716
  Serious: Yes (Hospitalization, Other)
  Sender: BRISTOL-MYERS SQUIBB COMPANY
  Company Number: CA-BRISTOL-MYERS SQUIBB COMPANY-2025-084197

PATIENT
  Age: 71 Year
  Sex: Female
  Weight: 63 kg

DRUGS (1)
  1. POMALIDOMIDE [Suspect]
     Active Substance: POMALIDOMIDE
     Indication: Product used for unknown indication

REACTIONS (6)
  - Blood disorder [Recovered/Resolved]
  - Hepatobiliary disease [Recovered/Resolved]
  - Hypertransaminasaemia [Recovered/Resolved]
  - Myelosuppression [Recovered/Resolved]
  - Pancreatitis [Recovered/Resolved]
  - Hospitalisation [Unknown]
